FAERS Safety Report 8300514-8 (Version None)
Quarter: 2012Q2

REPORT INFORMATION
  Report Type: 
  Country: None (occurrence: None)
  Receive Date: 20120420
  Receipt Date: 20120412
  Transmission Date: 20120825
  Serious: Yes (Hospitalization)
  Sender: FDA-Public Use
  Company Number: US-BIOGENIDEC-2011BI039524

PATIENT
  Age: 50 Year
  Sex: Female
  Weight: 71 kg

DRUGS (6)
  1. TRAZODONE HCL [Concomitant]
     Indication: INSOMNIA
     Route: 048
  2. PROVIGIL [Concomitant]
     Indication: FATIGUE
     Route: 048
  3. CELEXA [Concomitant]
     Indication: DEPRESSION
     Route: 048
  4. BACLOFEN [Concomitant]
     Indication: MUSCLE SPASMS
     Route: 048
  5. TYSABRI [Suspect]
     Indication: MULTIPLE SCLEROSIS
     Route: 042
     Dates: start: 20081203
  6. FENTANYL-100 [Concomitant]
     Indication: PAIN
     Route: 062

REACTIONS (1)
  - ANGINA PECTORIS [None]
